FAERS Safety Report 6569949-8 (Version None)
Quarter: 2010Q1

REPORT INFORMATION
  Report Type: 
  Country: None (occurrence: None)
  Receive Date: 20100204
  Receipt Date: 20100126
  Transmission Date: 20100710
  Serious: Yes (Death, Other)
  Sender: FDA-Public Use
  Company Number: CH-ELI_LILLY_AND_COMPANY-CH201001000691

PATIENT
  Sex: Male
  Weight: 54 kg

DRUGS (4)
  1. HUMALOG [Suspect]
     Indication: TYPE 1 DIABETES MELLITUS
     Dosage: UNK, 3/D
     Route: 058
     Dates: start: 20040101
  2. LANTUS [Concomitant]
     Indication: TYPE 1 DIABETES MELLITUS
     Dosage: UNK, DAILY (1/D)
     Route: 058
     Dates: start: 20040101
  3. MEPHAQUIN [Concomitant]
     Indication: MALARIA PROPHYLAXIS
     Dosage: UNK, WEEKLY (1/W)
     Route: 048
     Dates: start: 20071201
  4. ASPIRIN [Concomitant]
     Indication: HEADACHE
     Dosage: UNK, UNKNOWN
     Dates: start: 20080126

REACTIONS (19)
  - ACCIDENTAL OVERDOSE [None]
  - BLOOD KETONE BODY INCREASED [None]
  - COMA [None]
  - CONTUSION [None]
  - CONVULSION [None]
  - DEATH [None]
  - EPISTAXIS [None]
  - EXCORIATION [None]
  - HAEMORRHAGE [None]
  - HEADACHE [None]
  - HUNGER [None]
  - HYPERGLYCAEMIA [None]
  - HYPERHIDROSIS [None]
  - HYPOGLYCAEMIA [None]
  - LOSS OF CONSCIOUSNESS [None]
  - POLLAKIURIA [None]
  - TACHYCARDIA [None]
  - TREMOR [None]
  - WOUND [None]
